FAERS Safety Report 4435785-1 (Version None)
Quarter: 2004Q3

REPORT INFORMATION
  Report Type: 
  Country: None (occurrence: None)
  Receive Date: 20040826
  Receipt Date: 20040816
  Transmission Date: 20050211
  Serious: Yes (Hospitalization)
  Sender: FDA-Public Use
  Company Number: 2004UW17103

PATIENT
  Age: 41 Year
  Sex: Male
  Weight: 111.4034 kg

DRUGS (6)
  1. SEROQUEL [Suspect]
     Indication: SCHIZOPHRENIA
     Dosage: 200 MG BID PO
     Route: 048
     Dates: start: 20040719, end: 20040809
  2. SEROQUEL [Suspect]
     Indication: SCHIZOPHRENIA
     Dosage: 600 MG DAILY PO
     Route: 048
     Dates: start: 20040810, end: 20040813
  3. SEROQUEL [Suspect]
     Indication: SCHIZOPHRENIA
     Dosage: 400 MG BID PO
     Route: 048
     Dates: start: 20040814
  4. RABEPRAZOLE SODIUM [Concomitant]
  5. TYLENOL [Concomitant]
  6. GLYBURIDE [Concomitant]

REACTIONS (5)
  - ALCOHOL USE [None]
  - CONDITION AGGRAVATED [None]
  - MEDICATION ERROR [None]
  - PSYCHOTIC DISORDER [None]
  - TREATMENT NONCOMPLIANCE [None]
